FAERS Safety Report 21192514 (Version 3)
Quarter: 2022Q4

REPORT INFORMATION
  Report Type: Report from Study
  Country: US (occurrence: US)
  Receive Date: 20220809
  Receipt Date: 20221230
  Transmission Date: 20230112
  Serious: Yes (Hospitalization, Other)
  Sender: FDA-Public Use
  Company Number: US-BIOGEN-2022BI01146079

PATIENT
  Age: 47 Year
  Sex: Male
  Weight: 62 kg

DRUGS (3)
  1. TYSABRI [Suspect]
     Active Substance: NATALIZUMAB
     Indication: Disease risk factor
     Route: 050
     Dates: start: 20170614, end: 20170628
  2. Blinotumumab [Concomitant]
     Indication: Product used for unknown indication
     Route: 050
  3. DASATINIB [Concomitant]
     Active Substance: DASATINIB
     Indication: Product used for unknown indication
     Route: 050

REACTIONS (6)
  - Cytomegalovirus infection reactivation [Recovered/Resolved]
  - Cytomegalovirus viraemia [Recovered/Resolved]
  - Transplant failure [Unknown]
  - Myelodysplastic syndrome [Unknown]
  - Megakaryocytes abnormal [Unknown]
  - Erythroid dysplasia [Unknown]

NARRATIVE: CASE EVENT DATE: 20170714
